FAERS Safety Report 18546226 (Version 1)
Quarter: 2020Q4

REPORT INFORMATION
  Report Type: Spontaneous
  Country: US (occurrence: US)
  Receive Date: 20201125
  Receipt Date: 20201125
  Transmission Date: 20210114
  Serious: Yes (Disabling, Other)
  Sender: FDA-Public Use
  Company Number: US-PURDUE-USA-2020-0177232

PATIENT
  Sex: Male

DRUGS (4)
  1. MS CONTIN [Suspect]
     Active Substance: MORPHINE SULFATE
     Indication: DIARRHOEA
     Dosage: 200 MG, BID
     Route: 048
     Dates: start: 2008
  2. MS CONTIN [Suspect]
     Active Substance: MORPHINE SULFATE
     Dosage: UNK
     Route: 048
  3. MORPHINE SULFATE EXTENDED-RELEASE TABLETS (RHODES 74-769, 74-862) [Suspect]
     Active Substance: MORPHINE SULFATE
     Indication: BREAKTHROUGH PAIN
     Dosage: UNK
     Route: 048
  4. MS CONTIN [Suspect]
     Active Substance: MORPHINE SULFATE
     Indication: MUSCLE SPASMS
     Dosage: 30 MG, Q6H
     Route: 048

REACTIONS (7)
  - Liver injury [Unknown]
  - Hypoaesthesia [Unknown]
  - Weight decreased [Unknown]
  - Disability [Unknown]
  - Drug dependence [Unknown]
  - Exercise tolerance decreased [Unknown]
  - Withdrawal syndrome [Unknown]
